FAERS Safety Report 4973771-3 (Version None)
Quarter: 2006Q2

REPORT INFORMATION
  Report Type: 
  Country: None (occurrence: None)
  Receive Date: 20060414
  Receipt Date: 20050324
  Transmission Date: 20061013
  Serious: Yes (Hospitalization, Disabling)
  Sender: FDA-Public Use
  Company Number: CA-MERCK-0503CAN00245

PATIENT
  Age: 37 Year
  Sex: Female
  Weight: 97 kg

DRUGS (24)
  1. MORPHINE SULFATE [Concomitant]
     Route: 065
  2. ACETAMINOPHEN AND CODEINE PHOSPHATE [Concomitant]
     Route: 065
     Dates: start: 20020901, end: 20021201
  3. METOPROLOL [Concomitant]
     Route: 065
     Dates: start: 20020101
  4. ENOXAPARIN SODIUM [Concomitant]
     Route: 065
  5. LOVASTATIN [Concomitant]
     Route: 065
  6. VENLAFAXINE HYDROCHLORIDE [Concomitant]
     Route: 065
     Dates: start: 20020611
  7. LORAZEPAM [Concomitant]
     Route: 065
     Dates: start: 20020101
  8. VIOXX [Suspect]
     Indication: OSTEOARTHRITIS
     Route: 048
     Dates: start: 20020101, end: 20020801
  9. ATORVASTATIN CALCIUM [Concomitant]
     Indication: BLOOD CHOLESTEROL ABNORMAL
     Route: 065
  10. TRAZODONE HYDROCHLORIDE [Concomitant]
     Indication: DEPRESSION
     Route: 065
  11. ASTRAGALUS [Concomitant]
     Indication: MENOPAUSE
     Route: 065
  12. ESTROPIPATE [Concomitant]
     Indication: MENOPAUSE
     Route: 065
  13. IRBESARTAN [Concomitant]
     Indication: HYPERTENSION
     Route: 065
  14. BUPROPION HYDROCHLORIDE [Concomitant]
     Indication: DEPRESSION
     Route: 065
  15. ZOPICLONE [Concomitant]
     Indication: INSOMNIA
     Route: 065
  16. LEVOTHYROXINE SODIUM [Concomitant]
     Indication: THYROID DISORDER
     Route: 065
  17. INSULIN HUMAN [Concomitant]
     Indication: DIABETES MELLITUS
     Route: 065
  18. FLUCONAZOLE [Concomitant]
     Route: 065
     Dates: start: 19950101
  19. RAMIPRIL [Concomitant]
     Indication: HYPERTENSION
     Route: 065
     Dates: start: 19920101, end: 20040101
  20. BUDESONIDE AND FORMOTEROL FUMARATE [Concomitant]
     Route: 065
  21. TEMAZEPAM [Concomitant]
     Indication: INSOMNIA
     Route: 065
  22. OXAZEPAM [Concomitant]
     Indication: INSOMNIA
     Route: 065
  23. DICLOFENAC SODIUM AND MISOPROSTOL [Concomitant]
     Route: 065
  24. METFORMIN [Concomitant]
     Indication: DIABETES MELLITUS
     Route: 065

REACTIONS (7)
  - ANHEDONIA [None]
  - DEPRESSION [None]
  - HYPERTENSION [None]
  - MYOCARDIAL INFARCTION [None]
  - NERVOUS SYSTEM DISORDER [None]
  - PAIN [None]
  - PANIC DISORDER [None]
